FAERS Safety Report 15229525 (Version 1)
Quarter: 2018Q3

REPORT INFORMATION
  Report Type: Spontaneous
  Country: US (occurrence: US)
  Receive Date: 20180802
  Receipt Date: 20180802
  Transmission Date: 20181010
  Serious: Yes (Other)
  Sender: FDA-Public Use
  Company Number: US-STRIDES ARCOLAB LIMITED-2018SP003363

PATIENT

DRUGS (1)
  1. TENOFOVIR DISOPROXIL FUMARATE. [Suspect]
     Active Substance: TENOFOVIR DISOPROXIL FUMARATE
     Indication: HIV INFECTION
     Dosage: UNK
     Route: 065

REACTIONS (9)
  - Hyporeflexia [Unknown]
  - Asthenia [Recovered/Resolved]
  - Hypophosphataemia [Unknown]
  - Polyuria [Recovered/Resolved]
  - Fanconi syndrome [Unknown]
  - Nephrogenic diabetes insipidus [Unknown]
  - Rhabdomyolysis [Unknown]
  - Electrolyte imbalance [Recovered/Resolved]
  - Fall [Unknown]
